FAERS Safety Report 22970417 (Version 2)
Quarter: 2024Q2

REPORT INFORMATION
  Report Type: Report from Study
  Country: CA (occurrence: CA)
  Receive Date: 20230922
  Receipt Date: 20240628
  Transmission Date: 20240716
  Serious: Yes (Other)
  Sender: FDA-Public Use
  Company Number: CA-TAKEDA-2023TUS061623

PATIENT
  Age: 40 Year
  Sex: Female

DRUGS (6)
  1. VEDOLIZUMAB [Suspect]
     Active Substance: VEDOLIZUMAB
     Indication: Colitis ulcerative
     Dosage: 300 MILLIGRAM
     Route: 042
     Dates: start: 20220309
  2. VEDOLIZUMAB [Suspect]
     Active Substance: VEDOLIZUMAB
     Dosage: 300 MILLIGRAM
     Route: 042
  3. VEDOLIZUMAB [Suspect]
     Active Substance: VEDOLIZUMAB
     Dosage: 300 MILLIGRAM
     Route: 042
  4. PREDNISONE [Concomitant]
     Active Substance: PREDNISONE
     Dosage: UNK MILLIGRAM
     Dates: start: 20220226, end: 20220425
  5. MESALAMINE [Concomitant]
     Active Substance: MESALAMINE
     Indication: Arthralgia
     Dosage: UNK
  6. SALAZOPYRINE [Concomitant]
     Active Substance: SULFASALAZINE
     Indication: Arthralgia
     Dosage: UNK

REACTIONS (3)
  - Hip surgery [Recovered/Resolved with Sequelae]
  - Inappropriate schedule of product administration [Unknown]
  - Exostosis [Unknown]

NARRATIVE: CASE EVENT DATE: 20230817
